FAERS Safety Report 4874765-9 (Version None)
Quarter: 2006Q1

REPORT INFORMATION
  Report Type: 
  Country: None (occurrence: None)
  Receive Date: 20060104
  Receipt Date: 20051220
  Transmission Date: 20060701
  Serious: Yes (Hospitalization)
  Sender: FDA-Public Use
  Company Number: 2005171900

PATIENT
  Sex: Female

DRUGS (2)
  1. RELPAX [Suspect]
     Indication: MIGRAINE
     Dosage: 80 MG (40 MG, 2 IN 1 D)
  2. COFFEE (CAFFEINE) [Concomitant]

REACTIONS (5)
  - BLOOD PRESSURE ABNORMAL [None]
  - BLOOD PRESSURE DECREASED [None]
  - FEELING DRUNK [None]
  - MALAISE [None]
  - SPEECH DISORDER [None]
